FAERS Safety Report 8522760-0 (Version None)
Quarter: 2012Q3

REPORT INFORMATION
  Report Type: 
  Country: None (occurrence: None)
  Receive Date: 20120719
  Receipt Date: 20120713
  Transmission Date: 20120928
  Serious: Yes (Other)
  Sender: FDA-Public Use
  Company Number: US-B.I. PHARMACEUTICALS,INC./RIDGEFIELD-2012-BP-15696BP

PATIENT
  Sex: Female

DRUGS (8)
  1. METHIMAZOLE [Concomitant]
     Indication: HYPERTHYROIDISM
     Dosage: 5 MG
     Route: 048
  2. PRADAXA [Suspect]
     Indication: ATRIAL FIBRILLATION
     Dosage: 300 MG
     Route: 048
     Dates: start: 20110801
  3. CRESTOR [Concomitant]
     Indication: BLOOD CHOLESTEROL INCREASED
     Dosage: 20 MG
     Route: 048
  4. ESTRADIOL [Concomitant]
     Indication: BLOOD OESTROGEN DECREASED
     Dosage: 0.5 MG
     Route: 048
  5. SOTALOL HYDROCHLORIDE [Concomitant]
     Indication: ATRIAL FIBRILLATION
     Dosage: 160 MG
     Route: 048
  6. LATANOPROST [Concomitant]
     Indication: GLAUCOMA
     Route: 031
  7. AMBIEN [Concomitant]
     Indication: INSOMNIA
     Dosage: 5 MG
     Route: 048
  8. XANAX [Concomitant]
     Indication: ANXIETY
     Route: 048

REACTIONS (2)
  - STASIS DERMATITIS [None]
  - TRANSIENT ISCHAEMIC ATTACK [None]
